FAERS Safety Report 9502906 (Version 2)
Quarter: 2013Q4

REPORT INFORMATION
  Report Type: Spontaneous
  Country: GB (occurrence: GB)
  Receive Date: 20130906
  Receipt Date: 20131127
  Transmission Date: 20140711
  Serious: Yes (Other)
  Sender: FDA-Public Use
  Company Number: PHFR2013GB005036

PATIENT
  Age: 67 Year
  Sex: Male
  Weight: 85.8 kg

DRUGS (38)
  1. SANDOSTATIN [Suspect]
     Indication: STOMA CARE
     Dosage: 100 UG, UNK
     Route: 058
     Dates: start: 20130812, end: 20130821
  2. SANDOSTATIN [Suspect]
     Indication: CARCINOID SYNDROME
  3. SANDOSTATIN [Suspect]
     Indication: OFF LABEL USE
  4. GENTAMICIN [Concomitant]
     Dosage: UNK UKN, UNK
  5. OXYGEN [Concomitant]
     Dosage: UNK UKN, UNK
  6. OXYGEN [Concomitant]
     Dosage: REPEAT MEDICATION.
  7. TINZAPARIN [Concomitant]
     Dosage: UNK UKN, UNK
  8. TINZAPARIN [Concomitant]
     Dosage: REPEAT MEDICATION.
  9. OMEPRAZOLE [Concomitant]
     Dosage: UNK UKN, UNK
  10. OMEPRAZOLE [Concomitant]
     Dosage: REPEAT MEDICATION.
  11. SIMVASTATIN [Concomitant]
     Dosage: UNK UKN, UNK
  12. SIMVASTATIN [Concomitant]
     Dosage: REPEAT MEDICATION.
  13. VALSARTAN [Concomitant]
     Indication: HYPERTENSION
     Dosage: UNK UKN, UNK
  14. VALSARTAN [Concomitant]
     Dosage: REPEAT MEDICATION. MEDICATION RESTARTED 8 DAYS LATER.
     Dates: end: 20130822
  15. PRAZOSIN [Concomitant]
     Indication: HYPERTENSION
     Dosage: UNK UKN, UNK
  16. PRAZOSIN [Concomitant]
     Dosage: REPEAT MEDICATION. MEDICATION RESTARTED 8 DAYS LATER.
     Dates: end: 20130822
  17. PARACETAMOL [Concomitant]
     Dosage: UNK UKN, UNK
  18. PARACETAMOL [Concomitant]
     Dosage: REPEAT MEDICATION.
  19. METOCLOPRAMIDE [Concomitant]
     Dosage: UNK UKN, UNK
  20. METOCLOPRAMIDE [Concomitant]
     Dosage: REPEAT MEDICATION.
  21. SANDO K                            /00209301/ [Concomitant]
     Dosage: UNK UKN, UNK
  22. MAGNESIUM GLYCEROPHOSPHATE [Concomitant]
     Dosage: UNK UKN, UNK
  23. METRONIDAZOLE [Concomitant]
     Dosage: UNK UKN, UNK
  24. METRONIDAZOLE [Concomitant]
     Dosage: REPEAT MEDICATION.
  25. AUGMENTAN                          /02043401/ [Concomitant]
     Dosage: UNK UKN, UNK
  26. FENTANYL [Concomitant]
     Dosage: UNK UKN, UNK
  27. FENTANYL [Concomitant]
     Dosage: REPEAT MEDICATION.
  28. MORPHINE SULPHATE [Concomitant]
     Dosage: UNK UKN, UNK
  29. ALGINIC ACID [Concomitant]
     Dosage: UNK UKN, UNK
  30. ALGINIC ACID [Concomitant]
     Dosage: REPEAT MEDICATION
  31. SODIUM PICOSULFATE [Concomitant]
     Dosage: UNK UKN, UNK
  32. SODIUM PICOSULFATE [Concomitant]
     Dosage: REPEAT MEDICATION.
  33. IBUPROFEN [Concomitant]
     Dosage: UNK UKN, UNK
  34. IBUPROFEN [Concomitant]
     Dosage: REPEAT MEDICATION.
  35. TRAMADOL [Concomitant]
     Dosage: UNK UKN, UNK
  36. ONDANSETRON [Concomitant]
     Dosage: UNK UKN, UNK
  37. ONDANSETRON [Concomitant]
     Dosage: REPEAT MEDICATION.
  38. LANSOPRAZOL [Concomitant]
     Dosage: UNK UKN, UNK

REACTIONS (5)
  - Hypotension [Recovered/Resolved]
  - Dizziness postural [Recovered/Resolved]
  - Fatigue [Not Recovered/Not Resolved]
  - Gait disturbance [Unknown]
  - Long QT syndrome [Recovering/Resolving]
